FAERS Safety Report 21613917 (Version 1)
Quarter: 2022Q4

REPORT INFORMATION
  Report Type: Report from Study
  Country: PR (occurrence: PR)
  Receive Date: 20221118
  Receipt Date: 20221118
  Transmission Date: 20230113
  Serious: Yes (Other)
  Sender: FDA-Public Use
  Company Number: PR-ABBVIE-4206248

PATIENT
  Sex: Male
  Weight: 67.131 kg

DRUGS (4)
  1. HUMIRA [Suspect]
     Active Substance: ADALIMUMAB
     Indication: Rheumatoid arthritis
     Dosage: FORM STRENGTH: 40 MILLIGRAM
     Route: 058
     Dates: start: 2019, end: 202201
  2. METHOTREXATE [Concomitant]
     Active Substance: METHOTREXATE
     Indication: Inflammation
     Dosage: FORM STRENGTH: 2.5 MILLIGRAM
     Route: 048
  3. FOLIC ACID [Concomitant]
     Active Substance: FOLIC ACID
     Indication: Product used for unknown indication
     Dosage: FORM STRENGTH: 1 MILLIGRAM
     Route: 048
     Dates: start: 202209
  4. VITAMIN D [Concomitant]
     Active Substance: VITAMIN D NOS
     Indication: Product used for unknown indication
     Route: 048
     Dates: start: 2021

REACTIONS (4)
  - Pulmonary fibrosis [Not Recovered/Not Resolved]
  - Osteoporosis [Recovering/Resolving]
  - Scleroderma [Not Recovered/Not Resolved]
  - Osteopenia [Recovering/Resolving]

NARRATIVE: CASE EVENT DATE: 20210101
